FAERS Safety Report 15454228 (Version 3)
Quarter: 2018Q4

REPORT INFORMATION
  Report Type: Report from Study
  Country: None (occurrence: DE)
  Receive Date: 20181002
  Receipt Date: 20181026
  Transmission Date: 20190204
  Serious: Yes (Hospitalization)
  Sender: FDA-Public Use
  Company Number: DE-ABBVIE-18S-062-2503684-00

PATIENT
  Age: 62 Year
  Sex: Male

DRUGS (6)
  1. DUODOPA [Suspect]
     Active Substance: CARBIDOPA\LEVODOPA
     Dosage: MD 5 ML; CRD 4.4 ML; ED 2.5 ML
     Route: 050
     Dates: start: 201809, end: 20181019
  2. DUODOPA [Suspect]
     Active Substance: CARBIDOPA\LEVODOPA
     Dosage: MD: 5ML, CRD: 4.7ML, ED: 1ML
     Route: 050
     Dates: start: 201809, end: 201809
  3. DUODOPA [Suspect]
     Active Substance: CARBIDOPA\LEVODOPA
     Indication: PARKINSON^S DISEASE
     Dosage: MD: 5ML, CRD: 4.0ML, ED: 0ML
     Route: 050
     Dates: start: 20180913, end: 201809
  4. DUODOPA [Suspect]
     Active Substance: CARBIDOPA\LEVODOPA
     Dosage: MD: 5ML, CRD: 4.6ML/H, ED: 2.5ML
     Route: 050
     Dates: start: 20181019
  5. RIVASTIGMIN [Concomitant]
     Active Substance: RIVASTIGMINE
     Indication: PRODUCT USED FOR UNKNOWN INDICATION
  6. VITAMIN B12 [Concomitant]
     Active Substance: CYANOCOBALAMIN
     Indication: PRODUCT USED FOR UNKNOWN INDICATION

REACTIONS (1)
  - Mobility decreased [Recovering/Resolving]

NARRATIVE: CASE EVENT DATE: 20180920
